FAERS Safety Report 6020897-1 (Version None)
Quarter: 2008Q4

REPORT INFORMATION
  Report Type: 
  Country: None (occurrence: None)
  Receive Date: 20081229
  Receipt Date: 20081217
  Transmission Date: 20090506
  Serious: Yes (Hospitalization)
  Sender: FDA-Public Use
  Company Number: JP-PFIZER INC-2008089729

PATIENT
  Sex: Male
  Weight: 48.2 kg

DRUGS (13)
  1. SOLU-CORTEF [Suspect]
     Indication: FACIAL PALSY
     Dosage: UNK
     Route: 042
     Dates: start: 20081022, end: 20081022
  2. PREDNISOLONE [Suspect]
     Indication: FACIAL PALSY
     Route: 048
     Dates: start: 20081023, end: 20081119
  3. ARICEPT [Concomitant]
     Dosage: UNK
     Route: 048
  4. DIAZEPAM [Concomitant]
     Dosage: UNK
     Route: 048
  5. SELBEX [Concomitant]
     Dosage: UNK
     Route: 048
  6. KINEDAK [Concomitant]
     Dosage: UNK
     Route: 048
  7. STARSIS [Concomitant]
     Dosage: UNK
     Route: 048
  8. ASPIRIN [Concomitant]
     Dosage: UNK
     Route: 048
  9. ALFAROL [Concomitant]
     Dosage: UNK
     Route: 048
  10. AMARYL [Concomitant]
     Dosage: UNK
     Route: 048
  11. HARNAL [Concomitant]
     Dosage: UNK
     Route: 048
  12. ACTOS [Concomitant]
     Dosage: UNK
     Route: 048
  13. SLOW-FE [Concomitant]
     Dosage: UNK
     Route: 048

REACTIONS (1)
  - HYPERGLYCAEMIA [None]
